FAERS Safety Report 9256782 (Version 1)
Quarter: 2013Q2

REPORT INFORMATION
  Report Type: Spontaneous
  Country: US (occurrence: None)
  Receive Date: 20130423
  Receipt Date: 20130423
  Transmission Date: 20140414
  Serious: Yes (Other)
  Sender: FDA-Public Use
  Company Number: None

PATIENT
  Age: 56 Year
  Sex: Female
  Weight: 96.16 kg

DRUGS (1)
  1. CIPRO [Suspect]
     Indication: URINARY TRACT INFECTION
     Dosage: 250 MG  2X DAILY PO
     Route: 048
     Dates: start: 20130401, end: 20130403

REACTIONS (11)
  - Myalgia [None]
  - Musculoskeletal pain [None]
  - Pain [None]
  - Asthenia [None]
  - Tendon pain [None]
  - Fatigue [None]
  - Faeces discoloured [None]
  - Blood glucose decreased [None]
  - Arthritis [None]
  - Joint stiffness [None]
  - Muscular weakness [None]
